FAERS Safety Report 4588053-1 (Version None)
Quarter: 2005Q1

REPORT INFORMATION
  Report Type: 
  Country: None (occurrence: None)
  Receive Date: 20050216
  Receipt Date: 20050203
  Transmission Date: 20050727
  Serious: Yes (Other)
  Sender: FDA-Public Use
  Company Number: 2005026394

PATIENT
  Age: 59 Year
  Sex: Male
  Weight: 91.6 kg

DRUGS (2)
  1. GENOTROPIN [Suspect]
     Indication: HYPOPITUITARISM
     Dosage: SEE IMAGE
     Dates: start: 20020111, end: 20040114
  2. GENOTROPIN [Suspect]
     Indication: HYPOPITUITARISM
     Dosage: SEE IMAGE
     Dates: start: 20040114, end: 20050112

REACTIONS (2)
  - NON-SECRETORY ADENOMA OF PITUITARY [None]
  - PITUITARY TUMOUR RECURRENT [None]
